FAERS Safety Report 8714739 (Version 2)
Quarter: 2013Q2

REPORT INFORMATION
  Report Type: Spontaneous
  Country: US (occurrence: US)
  Receive Date: 20120809
  Receipt Date: 20130423
  Transmission Date: 20140414
  Serious: Yes (Hospitalization)
  Sender: FDA-Public Use
  Company Number: US-BAYER-2012-079333

PATIENT
  Age: 36 Year
  Sex: Female

DRUGS (15)
  1. YAZ [Suspect]
     Dosage: UNK
  2. ZARAH [Suspect]
     Dosage: UNK
     Dates: start: 20101214, end: 20110207
  3. LEXAPRO [Concomitant]
     Dosage: 20 MG, DAILY
     Route: 048
  4. SYNTHROID [Concomitant]
     Dosage: 137 MCG, DAILY
     Route: 048
  5. AZITHROMYCIN [Concomitant]
     Dosage: 250 MG, 6-PAK
     Route: 048
  6. ANTI-ASTHMATICS [Concomitant]
     Indication: DYSPNOEA
     Dosage: 8.5 GM 2-3 PUFFS INHALED FOUR TIMES DAILY AS NEEDED
  7. HYDROMET SYRUP [Concomitant]
     Indication: COUGH
     Dosage: 5 ML, TWICE DAILY AS NEEDED
     Route: 048
  8. FLUTICASONE [Concomitant]
     Dosage: 16 GM, 2 SPRAYS EACH NOSTRIL DAILY
     Route: 045
  9. TAMIFLU [Concomitant]
     Dosage: 75 MG, BID FOR FIVE DAYS
     Route: 048
  10. ALPRAZOLAM [Concomitant]
     Dosage: 0.5 MG, DAILY
     Route: 048
  11. ABILIFY [Concomitant]
     Dosage: 2 MG, DAILY
     Route: 048
  12. NORCO [Concomitant]
     Dosage: UNK
  13. SURFAK STOOL SOFTENER [Concomitant]
     Dosage: UNK
  14. PHENERGAN [Concomitant]
     Dosage: UNK
  15. LEVOTHYROXINE [Concomitant]
     Dosage: UNK

REACTIONS (4)
  - Pulmonary embolism [None]
  - Injury [None]
  - Pain [None]
  - Pain [None]
